FAERS Safety Report 7231225-8 (Version None)
Quarter: 2011Q1

REPORT INFORMATION
  Report Type: 
  Country: None (occurrence: None)
  Receive Date: 20110118
  Receipt Date: 20110107
  Transmission Date: 20110831
  Serious: Yes (Death, Other)
  Sender: FDA-Public Use
  Company Number: B0690702A

PATIENT
  Age: 27 Year
  Sex: Female

DRUGS (1)
  1. PAROXETINE HCL [Suspect]
     Indication: DEPRESSION
     Route: 065
     Dates: start: 20101210, end: 20101214

REACTIONS (4)
  - COMPLETED SUICIDE [None]
  - HEADACHE [None]
  - DIZZINESS [None]
  - SUICIDE ATTEMPT [None]
